FAERS Safety Report 7252519-6 (Version None)
Quarter: 2011Q1

REPORT INFORMATION
  Report Type: 
  Country: None (occurrence: None)
  Receive Date: 20110129
  Receipt Date: 20100310
  Transmission Date: 20110831
  Serious: Yes (Hospitalization)
  Sender: FDA-Public Use
  Company Number: US-ABBOTT-10P-163-0617211-00

PATIENT
  Sex: Female
  Weight: 63.56 kg

DRUGS (3)
  1. LOTREL [Concomitant]
     Indication: BLOOD PRESSURE
     Dosage: 5/40 DAILY
  2. HUMIRA [Suspect]
     Indication: PSORIASIS
     Route: 058
     Dates: start: 20081208, end: 20100305
  3. TOTROLX [Concomitant]
     Indication: PRODUCT USED FOR UNKNOWN INDICATION

REACTIONS (4)
  - PRURITUS [None]
  - PAIN [None]
  - PSORIASIS [None]
  - FURUNCLE [None]
